FAERS Safety Report 21097531 (Version 2)
Quarter: 2022Q3

REPORT INFORMATION
  Report Type: Report from Study
  Country: CA (occurrence: CA)
  Receive Date: 20220719
  Receipt Date: 20220929
  Transmission Date: 20221026
  Serious: Yes (Other)
  Sender: FDA-Public Use
  Company Number: CA-BRISTOL-MYERS SQUIBB COMPANY-2022-073264

PATIENT
  Age: 71 Year
  Sex: Male
  Weight: 99.79 kg

DRUGS (9)
  1. ORENCIA [Suspect]
     Active Substance: ABATACEPT
     Indication: Rheumatoid arthritis
     Route: 058
     Dates: start: 20170227
  2. CELEBREX [Concomitant]
     Active Substance: CELECOXIB
     Indication: Product used for unknown indication
     Route: 065
  3. SYNTHROID [Concomitant]
     Active Substance: LEVOTHYROXINE SODIUM
     Indication: Product used for unknown indication
     Route: 065
  4. FOLIC ACID [Concomitant]
     Active Substance: FOLIC ACID
     Indication: Product used for unknown indication
     Route: 065
  5. VALSARTAN [Concomitant]
     Active Substance: VALSARTAN
     Indication: Product used for unknown indication
     Route: 065
  6. ESOMEPRAZOLE [Concomitant]
     Active Substance: ESOMEPRAZOLE
     Indication: Product used for unknown indication
     Dosage: 3 YEARS
     Route: 065
  7. CORTISONE [Concomitant]
     Active Substance: CORTISONE
     Indication: Product used for unknown indication
     Dosage: CORTISONE SHOT MARCH 23RD IN RIGHT KNEE
     Route: 065
  8. TANTUM [BENZYDAMINE HYDROCHLORIDE] [Concomitant]
     Indication: Product used for unknown indication
     Route: 065
  9. TYLENOL ARTHRITIS PAIN [Concomitant]
     Active Substance: ACETAMINOPHEN
     Indication: Product used for unknown indication
     Route: 065

REACTIONS (1)
  - Myocardial infarction [Unknown]

NARRATIVE: CASE EVENT DATE: 20211201
